FAERS Safety Report 16500316 (Version 1)
Quarter: 2019Q3

REPORT INFORMATION
  Report Type: Spontaneous
  Country: IT (occurrence: IT)
  Receive Date: 20190701
  Receipt Date: 20190701
  Transmission Date: 20191004
  Serious: Yes (Hospitalization)
  Sender: FDA-Public Use
  Company Number: IT-ACCORD-136003

PATIENT
  Age: 88 Year
  Sex: Male

DRUGS (8)
  1. SIMVASTATIN. [Concomitant]
     Active Substance: SIMVASTATIN
  2. CANRENOIC ACID [Suspect]
     Active Substance: CANRENOIC ACID
     Indication: HYPERTENSION
     Route: 048
     Dates: start: 20190101, end: 20190507
  3. OMNIC [Concomitant]
     Active Substance: TAMSULOSIN HYDROCHLORIDE
  4. EUTIROX [Concomitant]
     Active Substance: LEVOTHYROXINE SODIUM
  5. LEVOFLOXACIN. [Concomitant]
     Active Substance: LEVOFLOXACIN
  6. RAMIPRIL. [Suspect]
     Active Substance: RAMIPRIL
     Indication: HYPERTENSION
     Route: 048
     Dates: start: 20190101, end: 20190507
  7. CARDIOASPIRIN [Concomitant]
     Active Substance: ASPIRIN
  8. AMLODIPINE [Concomitant]
     Active Substance: AMLODIPINE BESYLATE

REACTIONS (5)
  - Loss of consciousness [Unknown]
  - Asthenia [Unknown]
  - Headache [Unknown]
  - Malaise [Unknown]
  - Hyperkalaemia [Unknown]

NARRATIVE: CASE EVENT DATE: 20190507
